FAERS Safety Report 25535636 (Version 3)
Quarter: 2025Q3

REPORT INFORMATION
  Report Type: Spontaneous
  Country: EU (occurrence: EU)
  Receive Date: 20250709
  Receipt Date: 20250818
  Transmission Date: 20251020
  Serious: Yes (Disabling)
  Sender: SANDOZ
  Company Number: None

PATIENT
  Age: 33 Year
  Sex: Female
  Weight: 59 kg

DRUGS (2)
  1. HYRIMOZ [Suspect]
     Active Substance: ADALIMUMAB-ADAZ
     Indication: Inflammatory bowel disease
     Dosage: 40 MG, Q2W, SC EVERY 2 WEEKS, STRENGTH: 40 MG
     Route: 003
     Dates: start: 20250616
  2. MESALAMINE [Concomitant]
     Active Substance: MESALAMINE
     Indication: Colitis ulcerative
     Dosage: 800 MG, Q8H, 400 MILLIGRAM 2-2-2 (9 TABLETS PER DAY)
     Route: 065

REACTIONS (6)
  - Lethargy [Recovered/Resolved]
  - Asthenia [Recovered/Resolved]
  - Fatigue [Unknown]
  - Pain [Unknown]
  - Asthenia [Unknown]
  - Hypoaesthesia [Unknown]

NARRATIVE: CASE EVENT DATE: 20250616
